FAERS Safety Report 8883249 (Version 18)
Quarter: 2016Q3

REPORT INFORMATION
  Report Type: Spontaneous
  Country: CA (occurrence: CA)
  Receive Date: 20121102
  Receipt Date: 20160805
  Transmission Date: 20161109
  Serious: Yes (Other)
  Sender: FDA-Public Use
  Company Number: CA-GLAXOSMITHKLINE-A0972425A

PATIENT
  Sex: Female
  Weight: 68 kg

DRUGS (9)
  1. BENLYSTA [Suspect]
     Active Substance: BELIMUMAB
     Indication: SYSTEMIC LUPUS ERYTHEMATOSUS
     Dosage: 10 MG/KG EVERY 0, 2, 4 THEN EVERY 4 WEEKS
     Route: 042
     Dates: start: 20120307
  2. PREDNISONE. [Concomitant]
     Active Substance: PREDNISONE
     Indication: PRODUCT USED FOR UNKNOWN INDICATION
     Dosage: 5 MG, 1D
     Route: 065
  3. IMURAN [Concomitant]
     Active Substance: AZATHIOPRINE
     Indication: PRODUCT USED FOR UNKNOWN INDICATION
     Dosage: 75 MG, U
     Route: 048
  4. GRAVOL [Concomitant]
     Active Substance: DIMENHYDRINATE
     Indication: PRODUCT USED FOR UNKNOWN INDICATION
     Dosage: UNK
  5. ZITHROMAX [Concomitant]
     Active Substance: AZITHROMYCIN DIHYDRATE
     Indication: PRODUCT USED FOR UNKNOWN INDICATION
     Dosage: UNK
  6. BISOPROLOL [Concomitant]
     Active Substance: BISOPROLOL
     Indication: CARDIAC DISORDER
     Dosage: 2.5 MG, UNK
  7. BENLYSTA [Suspect]
     Active Substance: BELIMUMAB
     Dosage: 680 MG, Q4-6 WEEKS
     Route: 042
  8. SOLUMEDROL IV [Concomitant]
     Indication: PRODUCT USED FOR UNKNOWN INDICATION
     Dosage: 50 MG, UNK
     Route: 042
  9. BENLYSTA [Suspect]
     Active Substance: BELIMUMAB
     Dosage: 680 MG, Q6-8WEEKS
     Route: 042

REACTIONS (31)
  - Fatigue [Unknown]
  - Migraine [Unknown]
  - Nausea [Recovered/Resolved]
  - Nasopharyngitis [Not Recovered/Not Resolved]
  - Arthralgia [Unknown]
  - Vertigo [Unknown]
  - Crepitations [Unknown]
  - Palpitations [Unknown]
  - Flushing [Unknown]
  - Drug ineffective [Unknown]
  - Influenza [Unknown]
  - Sinus disorder [Unknown]
  - Systemic lupus erythematosus [Recovering/Resolving]
  - Anxiety [Not Recovered/Not Resolved]
  - Musculoskeletal stiffness [Unknown]
  - Vasculitic rash [Not Recovered/Not Resolved]
  - Headache [Unknown]
  - Dizziness [Unknown]
  - Pneumonia [Unknown]
  - Therapeutic response unexpected [Unknown]
  - Joint range of motion decreased [Unknown]
  - Adverse event [Recovering/Resolving]
  - Asthenia [Unknown]
  - Upper respiratory tract infection [Unknown]
  - Infection [Recovered/Resolved]
  - Tinnitus [Unknown]
  - Nervous system disorder [Unknown]
  - Heart rate increased [Unknown]
  - Pain [Recovering/Resolving]
  - Blood pressure decreased [Unknown]
  - Depression [Unknown]
